FAERS Safety Report 22135220 (Version 1)
Quarter: 2023Q1

REPORT INFORMATION
  Report Type: Spontaneous
  Country: JP (occurrence: JP)
  Receive Date: 20230324
  Receipt Date: 20230324
  Transmission Date: 20230418
  Serious: Yes (Other)
  Sender: FDA-Public Use
  Company Number: JP-PBT-007240

PATIENT
  Age: 75 Year
  Sex: Male

DRUGS (2)
  1. TACROLIMUS [Suspect]
     Active Substance: TACROLIMUS
     Indication: Seronegative arthritis
     Route: 065
  2. METHOTREXATE [Suspect]
     Active Substance: METHOTREXATE
     Indication: Seronegative arthritis
     Route: 065

REACTIONS (3)
  - Angioimmunoblastic T-cell lymphoma [Recovering/Resolving]
  - Drug effective for unapproved indication [Unknown]
  - Lymphoproliferative disorder [Recovering/Resolving]
